FAERS Safety Report 7818875 (Version 2)
Quarter: 2012Q4

REPORT INFORMATION
  Report Type: 
  Country: US (occurrence: US)
  Receive Date: 20110218
  Receipt Date: 20121126
  Transmission Date: 20130627
  Serious: Yes (Other)
  Sender: FDA-Public Use
  Company Number: US-ROCHE-737538

PATIENT
  Sex: Female

DRUGS (9)
  1. ACCUTANE [Suspect]
     Indication: ACNE
     Route: 065
     Dates: start: 198501, end: 198503
  2. ACCUTANE [Suspect]
     Route: 065
     Dates: start: 1986, end: 1986
  3. ACCUTANE [Suspect]
     Route: 065
     Dates: start: 199808, end: 199910
  4. ACCUTANE [Suspect]
     Route: 065
     Dates: start: 200801, end: 200806
  5. AMNESTEEM [Suspect]
     Indication: ACNE
     Route: 065
     Dates: start: 200801, end: 20080701
  6. CLARAVIS [Suspect]
     Indication: ACNE
     Dosage: DISPENSED ON 29 MAR 2008
     Route: 065
  7. LOPERAMIDE [Concomitant]
  8. TYLENOL [Concomitant]
  9. ALEVE [Concomitant]

REACTIONS (9)
  - Colitis ulcerative [Unknown]
  - Gastrointestinal injury [Unknown]
  - Inflammatory bowel disease [Unknown]
  - Intestinal haemorrhage [Unknown]
  - Arthralgia [Unknown]
  - Back pain [Unknown]
  - Neck pain [Unknown]
  - Headache [Unknown]
  - Insomnia [Unknown]
